FAERS Safety Report 5992932-8 (Version None)
Quarter: 2008Q4

REPORT INFORMATION
  Report Type: 
  Country: None (occurrence: None)
  Receive Date: 20081210
  Receipt Date: 20081210
  Transmission Date: 20090506
  Serious: Yes (Life-Threatening, Hospitalization)
  Sender: FDA-Public Use
  Company Number: None

PATIENT
  Age: 28 Year
  Sex: Male
  Weight: 86.1834 kg

DRUGS (1)
  1. AMITRIPTYLINE HCL [Suspect]
     Indication: MUSCLE SPASMS
     Dosage: 25MG QHS PO
     Route: 048
     Dates: start: 20081201, end: 20081202

REACTIONS (4)
  - CONVULSION [None]
  - DISORIENTATION [None]
  - FALL [None]
  - LOSS OF CONSCIOUSNESS [None]
